FAERS Safety Report 4592817-8 (Version None)
Quarter: 2005Q1

REPORT INFORMATION
  Report Type: 
  Country: None (occurrence: None)
  Receive Date: 20050228
  Receipt Date: 20041018
  Transmission Date: 20050727
  Serious: Yes (Hospitalization, Other)
  Sender: FDA-Public Use
  Company Number: US-BRISTOL-MYERS SQUIBB COMPANY-12735585

PATIENT
  Age: 13 Year
  Sex: Male
  Weight: 44 kg

DRUGS (5)
  1. ATAZANAVIR [Suspect]
     Indication: HIV INFECTION
     Dosage: THERAPY TEMPORARILY HELD ON 16-DEC-2004, DOSE REDUCED TO 800 MG ONCE DAILY RESTARTED ON 21-DEC-2004
     Route: 048
     Dates: start: 20040602
  2. VIDEX EC [Concomitant]
     Dosage: INTERRUPTED ON 16-DEC-2004, RESTARTED ON 21-DEC-2004
     Route: 048
     Dates: start: 20040602
  3. ZERIT [Concomitant]
     Dosage: INTERRUPTED ON 16-DEC-2004, RESTARTED ON 21-DEC-2004
     Route: 048
     Dates: start: 20040602
  4. ALBUTEROL [Concomitant]
     Dates: start: 20041202
  5. PHENERGAN W/ CODEINE [Concomitant]
     Dates: start: 20041202

REACTIONS (7)
  - ACCIDENTAL OVERDOSE [None]
  - BLOOD PRESSURE DIASTOLIC DECREASED [None]
  - CONDUCTION DISORDER [None]
  - DILATATION ATRIAL [None]
  - GAMMA-GLUTAMYLTRANSFERASE INCREASED [None]
  - HYPERBILIRUBINAEMIA [None]
  - MEDICATION ERROR [None]
